FAERS Safety Report 7418859-2 (Version None)
Quarter: 2011Q2

REPORT INFORMATION
  Report Type: 
  Country: None (occurrence: None)
  Receive Date: 20110415
  Receipt Date: 20110408
  Transmission Date: 20111010
  Serious: No
  Sender: FDA-Public Use
  Company Number: US-PFIZER INC-2011078063

PATIENT
  Age: 83 Year
  Sex: Male

DRUGS (10)
  1. SIMVASTATIN [Concomitant]
     Indication: BLOOD CHOLESTEROL INCREASED
     Dosage: UNK
  2. SERTRALINE [Concomitant]
     Dosage: UNK
     Dates: end: 20110324
  3. MILNACIPRAN [Interacting]
     Indication: BACK PAIN
     Dosage: 12.5 MG DAILY
     Route: 048
     Dates: start: 20110309, end: 20110309
  4. MILNACIPRAN [Interacting]
     Dosage: 25 MG 2 IN 1
     Route: 048
     Dates: start: 20110310, end: 20110311
  5. MILNACIPRAN [Interacting]
     Dosage: 100 MG, 2 IN 1
     Route: 048
     Dates: start: 20110316
  6. PREVACID [Concomitant]
     Indication: IRRITABLE BOWEL SYNDROME
     Dosage: UNK
  7. VALSARTAN [Concomitant]
     Indication: HYPERTENSION
     Dosage: UNK
  8. LYRICA [Suspect]
     Indication: BACK PAIN
     Dosage: UNK
     Dates: start: 20110324
  9. MILNACIPRAN [Interacting]
     Dosage: 50 MG, 2 IN 1
     Route: 048
     Dates: start: 20110312, end: 20110315
  10. LORAZEPAM [Concomitant]
     Indication: ANXIETY
     Dosage: UNK

REACTIONS (4)
  - DRUG INTERACTION [None]
  - ABDOMINAL DISCOMFORT [None]
  - HEADACHE [None]
  - RASH [None]
